FAERS Safety Report 7413080-6 (Version None)
Quarter: 2011Q2

REPORT INFORMATION
  Report Type: 
  Country: None (occurrence: None)
  Receive Date: 20110405
  Receipt Date: 20110317
  Transmission Date: 20111010
  Serious: Yes (Death)
  Sender: FDA-Public Use
  Company Number: 2011P1005312

PATIENT
  Age: 42 Year
  Sex: Male

DRUGS (1)
  1. AMPHETAMINE + DEXTROAMPHETAMINE (NO PREF. NAME) [Suspect]
     Dosage: 2080 MG;X1;PO
     Route: 048

REACTIONS (11)
  - HEADACHE [None]
  - BRADYCARDIA [None]
  - SELF-MEDICATION [None]
  - INCORRECT DOSE ADMINISTERED [None]
  - INTRACRANIAL ANEURYSM [None]
  - RESPIRATORY ARREST [None]
  - HEART RATE INCREASED [None]
  - BLOOD PRESSURE INCREASED [None]
  - DISORIENTATION [None]
  - HYPERHIDROSIS [None]
  - BODY TEMPERATURE DECREASED [None]
